FAERS Safety Report 8911012 (Version 1)
Quarter: 2012Q4

REPORT INFORMATION
  Report Type: 
  Country: US (occurrence: US)
  Receive Date: 20121115
  Receipt Date: 20121115
  Transmission Date: 20130627
  Serious: Yes (Life-Threatening, Other)
  Sender: FDA-Public Use
  Company Number: US-SPECTRUM PHARMACEUTICALS, INC.-12-F-US-00172

PATIENT
  Age: 51 Year
  Sex: Female

DRUGS (4)
  1. FLUOROURACIL [Suspect]
     Indication: SMALL INTESTINE CARCINOMA RECURRENT
     Dosage: UNK
     Route: 042
  2. LEUCOVORIN [Suspect]
     Indication: SMALL INTESTINE CARCINOMA RECURRENT
     Dosage: UNK
     Route: 042
  3. OXALIPLATIN [Suspect]
     Indication: SMALL INTESTINE CARCINOMA RECURRENT
     Dosage: UNK
     Route: 042
  4. IRINOTECAN [Suspect]
     Indication: SMALL INTESTINE CARCINOMA RECURRENT
     Dosage: UNK
     Route: 042

REACTIONS (21)
  - Multi-organ failure [Recovered/Resolved]
  - Cardiac failure congestive [Recovered/Resolved]
  - Renal failure acute [Recovered/Resolved]
  - Renal failure chronic [Recovered/Resolved]
  - Respiratory failure [Recovered/Resolved]
  - Leukoencephalopathy [Recovered/Resolved]
  - Pancytopenia [Recovered/Resolved]
  - Hypotension [Recovered/Resolved]
  - Nausea [Recovered/Resolved]
  - Vomiting [Recovered/Resolved]
  - Mental status changes [Recovered/Resolved]
  - Hyperammonaemia [Recovered/Resolved]
  - Dilatation ventricular [Recovered/Resolved]
  - Ventricular hypokinesia [Recovered/Resolved]
  - Ejection fraction decreased [Recovered/Resolved]
  - Intracardiac thrombus [Recovered/Resolved]
  - Pulmonary oedema [Recovered/Resolved]
  - Pleural effusion [Recovered/Resolved]
  - Febrile neutropenia [Recovered/Resolved]
  - Renal tubular necrosis [Recovered/Resolved]
  - Renal function test abnormal [Recovered/Resolved]
